FAERS Safety Report 5952676-5 (Version None)
Quarter: 2008Q4

REPORT INFORMATION
  Report Type: 
  Country: None (occurrence: None)
  Receive Date: 20081031
  Receipt Date: 20080926
  Transmission Date: 20090506
  Serious: No
  Sender: FDA-Public Use
  Company Number: 2008-US-000320

PATIENT
  Age: 12 Year
  Sex: Male
  Weight: 25.4 kg

DRUGS (1)
  1. INCRELEX [Suspect]
     Indication: BODY HEIGHT BELOW NORMAL
     Dosage: 33 UNITS, BID, SUBCUTANEOUS
     Route: 058
     Dates: start: 20080523

REACTIONS (1)
  - HAIR TEXTURE ABNORMAL [None]
